FAERS Safety Report 16415566 (Version 2)
Quarter: 2019Q3

REPORT INFORMATION
  Report Type: Spontaneous
  Country: US (occurrence: US)
  Receive Date: 20190611
  Receipt Date: 20190805
  Transmission Date: 20191004
  Serious: No
  Sender: FDA-Public Use
  Company Number: US-TEVA-2019-US-1058792

PATIENT

DRUGS (5)
  1. SOMA [Concomitant]
     Active Substance: CARISOPRODOL
     Dosage: HOUR OF SLEEP (HS)
  2. CELECOXIB. [Concomitant]
     Active Substance: CELECOXIB
     Dosage: 400 MILLIGRAM DAILY; 200 MG BID
  3. PERCOCET [Concomitant]
     Active Substance: ACETAMINOPHEN\OXYCODONE HYDROCHLORIDE
     Dosage: PRN
  4. DULOXETINE. [Concomitant]
     Active Substance: DULOXETINE
     Dosage: 20 MILLIGRAM DAILY; ONCE DAILY
  5. BUPRENORPHINE. [Suspect]
     Active Substance: BUPRENORPHINE
     Dosage: FORM STRENGTH 40 MCG/HR
     Route: 061
     Dates: start: 20190520, end: 20190620

REACTIONS (7)
  - Therapeutic product effect decreased [Unknown]
  - Skin disorder [Not Recovered/Not Resolved]
  - Rash [Not Recovered/Not Resolved]
  - Product substitution issue [Unknown]
  - Product adhesion issue [Unknown]
  - Skin irritation [Not Recovered/Not Resolved]
  - Blister [Not Recovered/Not Resolved]
